FAERS Safety Report 8005801-9 (Version None)
Quarter: 2011Q4

REPORT INFORMATION
  Report Type: 
  Country: None (occurrence: None)
  Receive Date: 20111223
  Receipt Date: 20111216
  Transmission Date: 20120403
  Serious: Yes (Death, Hospitalization)
  Sender: FDA-Public Use
  Company Number: ES-ROCHE-802728

PATIENT
  Sex: Male
  Weight: 58.1 kg

DRUGS (5)
  1. LEVOTHYROXINE SODIUM [Concomitant]
     Indication: HYPOTHYROIDISM
  2. CALCITRIOL [Concomitant]
     Indication: MEDICAL DIET
     Route: 048
  3. ISONIAZID [Concomitant]
     Indication: TUBERCULOSIS
     Dosage: DOSE REPORTE AS: 1500/B6
     Route: 048
     Dates: start: 20100924, end: 20110731
  4. ACTEMRA [Suspect]
     Indication: RHEUMATOID ARTHRITIS
     Route: 042
     Dates: start: 20101110, end: 20111030
  5. PREDNISONE TAB [Concomitant]
     Indication: RHEUMATOID ARTHRITIS
     Route: 048

REACTIONS (4)
  - AMYLOIDOSIS [None]
  - NEPHROPATHY [None]
  - PYREXIA [None]
  - EMBOLIC STROKE [None]
